FAERS Safety Report 6789731-6 (Version None)
Quarter: 2010Q2

REPORT INFORMATION
  Report Type: 
  Country: None (occurrence: None)
  Receive Date: 20100624
  Receipt Date: 20100621
  Transmission Date: 20101027
  Serious: Yes (Hospitalization, Other)
  Sender: FDA-Public Use
  Company Number: US-ELI_LILLY_AND_COMPANY-US201006005494

PATIENT
  Sex: Female

DRUGS (8)
  1. HUMULIN 70/30 [Suspect]
     Indication: DIABETES MELLITUS
     Dosage: 50 U, EACH MORNING
     Dates: start: 19950621
  2. HUMULIN 70/30 [Suspect]
     Dosage: 35 U, EACH EVENING
     Dates: start: 19950621
  3. HUMULIN 70/30 [Suspect]
     Dosage: 50 U, EACH MORNING
     Dates: start: 19950621
  4. HUMULIN 70/30 [Suspect]
     Dosage: 35 U, EACH EVENING
     Dates: start: 19950621
  5. SULFAMETHOXAZOLE [Concomitant]
  6. ZETIA [Concomitant]
  7. PRAVASTATIN [Concomitant]
  8. LISINOPRIL [Concomitant]

REACTIONS (4)
  - BLADDER OPERATION [None]
  - BLOOD GLUCOSE INCREASED [None]
  - NEOPLASM MALIGNANT [None]
  - POLYP [None]
